FAERS Safety Report 16104280 (Version 2)
Quarter: 2020Q1

REPORT INFORMATION
  Report Type: Spontaneous
  Country: FR (occurrence: FR)
  Receive Date: 20190322
  Receipt Date: 20200325
  Transmission Date: 20200409
  Serious: Yes (Death, Other)
  Sender: FDA-Public Use
  Company Number: FR-VIIV HEALTHCARE LIMITED-FR2019050658

PATIENT
  Age: 24 Year
  Sex: Male

DRUGS (2)
  1. TRIUMEQ [Suspect]
     Active Substance: ABACAVIR SULFATE\DOLUTEGRAVIR SODIUM\LAMIVUDINE
     Indication: HIV TEST POSITIVE
     Dosage: 1 DF, QD
     Route: 048
     Dates: start: 201709, end: 20190104
  2. ODEFSEY [Suspect]
     Active Substance: EMTRICITABINE\RILPIVIRINE HYDROCHLORIDE\TENOFOVIR ALAFENAMIDE FUMARATE
     Indication: HIV TEST POSITIVE
     Dosage: 1 DF, QD
     Route: 048
     Dates: start: 20190105, end: 20190111

REACTIONS (2)
  - Hanging [Fatal]
  - Completed suicide [Fatal]

NARRATIVE: CASE EVENT DATE: 20190111
